FAERS Safety Report 6084877-2 (Version None)
Quarter: 2009Q1

REPORT INFORMATION
  Report Type: 
  Country: None (occurrence: None)
  Receive Date: 20090220
  Receipt Date: 20090107
  Transmission Date: 20090719
  Serious: No
  Sender: FDA-Public Use
  Company Number: US-BAYER-200910332NA

PATIENT
  Age: 61 Year
  Weight: 90 kg

DRUGS (5)
  1. ULTRAVIST 370 [Suspect]
     Indication: COMPUTERISED TOMOGRAM ABDOMEN
     Dosage: TOTAL DAILY DOSE: 100 ML  UNIT DOSE: 500 ML
     Route: 042
     Dates: start: 20090107, end: 20090107
  2. AVAPRO [Concomitant]
  3. HYDROCODONE BITARTRATE [Concomitant]
  4. CLONIDINE [Concomitant]
  5. BENADRYL [Concomitant]
     Dosage: AS USED: 25 MG
     Route: 042
     Dates: start: 20090107, end: 20090107

REACTIONS (2)
  - THROAT IRRITATION [None]
  - URTICARIA [None]
